FAERS Safety Report 9808030 (Version 4)
Quarter: 2014Q2

REPORT INFORMATION
  Report Type: Spontaneous
  Country: US (occurrence: US)
  Receive Date: 20140110
  Receipt Date: 20140506
  Transmission Date: 20141212
  Serious: Yes (Hospitalization)
  Sender: FDA-Public Use
  Company Number: US-GLAXOSMITHKLINE-A1055369A

PATIENT
  Age: 52 Year
  Sex: Female

DRUGS (2)
  1. VENTOLIN HFA [Suspect]
     Indication: CHRONIC OBSTRUCTIVE PULMONARY DISEASE
     Dosage: 90MCG AS REQUIRED
     Route: 055
     Dates: start: 2007
  2. NEBULIZER [Concomitant]

REACTIONS (4)
  - Pneumonia [Unknown]
  - Dyspnoea [Recovering/Resolving]
  - Malaise [Unknown]
  - Inhalation therapy [Unknown]
